FAERS Safety Report 15163920 (Version 1)
Quarter: 2018Q3

REPORT INFORMATION
  Report Type: Spontaneous
  Country: GB (occurrence: GB)
  Receive Date: 20180719
  Receipt Date: 20180719
  Transmission Date: 20181010
  Serious: Yes (Hospitalization, Other)
  Sender: FDA-Public Use
  Company Number: GB-TEVA-2018-GB-928779

PATIENT
  Age: 34 Year
  Sex: Male

DRUGS (6)
  1. METHYLENEDIOXYMETHAMPHETAMINE [Concomitant]
     Active Substance: MIDOMAFETAMINE
     Indication: SUBSTANCE USE
     Route: 065
  2. MCAT [Concomitant]
     Active Substance: MEPHEDRONE
     Indication: SUBSTANCE USE
     Route: 065
  3. EMTRICITABINE AND TENOFOVIR [Suspect]
     Active Substance: EMTRICITABINE\TENOFOVIR
     Indication: PROPHYLAXIS AGAINST HIV INFECTION
     Dosage: 1 DOSAGE FORMS DAILY;
     Route: 048
     Dates: start: 20180404
  4. COCAINE [Concomitant]
     Active Substance: COCAINE
     Indication: SUBSTANCE USE
     Dosage: AND CRACK COCAINE
     Route: 065
  5. GAMMA?BUTYROLACTONE [Concomitant]
     Active Substance: BUTYROLACTONE
     Indication: SUBSTANCE USE
     Route: 065
  6. METAMFETAMINE [Concomitant]
     Active Substance: METHAMPHETAMINE
     Indication: SUBSTANCE USE
     Dosage: CRYSTAL METH.
     Route: 065

REACTIONS (2)
  - Methaemoglobinaemia [Recovered/Resolved]
  - Cyanosis [Recovered/Resolved]

NARRATIVE: CASE EVENT DATE: 2018
